FAERS Safety Report 8240866-0 (Version None)
Quarter: 2012Q1

REPORT INFORMATION
  Report Type: 
  Country: None (occurrence: None)
  Receive Date: 20120328
  Receipt Date: 20120314
  Transmission Date: 20120608
  Serious: Yes (Other)
  Sender: FDA-Public Use
  Company Number: DK-NOVEN-11DK003506

PATIENT
  Sex: Female
  Weight: 73.6 kg

DRUGS (19)
  1. ZOPICLONE [Suspect]
     Indication: INSOMNIA
     Dosage: 7.5 MG, QD
     Route: 065
     Dates: start: 20060405, end: 20110401
  2. TRAMADOL HCL [Suspect]
     Indication: PAIN
     Dosage: 100 MG, UNK
     Route: 065
     Dates: start: 20060816, end: 20061116
  3. MIANSERIN [Suspect]
     Dosage: UNK, UNKNOWN
     Route: 065
     Dates: start: 20080925, end: 20081201
  4. TRAMADOL HCL [Suspect]
     Indication: HEADACHE
     Dosage: 50 MG, UNK
     Route: 065
     Dates: start: 20061117, end: 20061201
  5. IBUMETIN [Concomitant]
     Indication: PRODUCT USED FOR UNKNOWN INDICATION
     Dosage: UNK
     Route: 065
     Dates: start: 20061201
  6. NORTRIPTYLINE HCL [Suspect]
     Dosage: UNK
     Route: 065
     Dates: start: 20090223, end: 20110701
  7. IBUPROFEN [Suspect]
     Indication: HEADACHE
     Dosage: UNK
     Route: 065
     Dates: start: 20041201, end: 20110301
  8. PAMOL [Concomitant]
     Indication: PRODUCT USED FOR UNKNOWN INDICATION
     Dosage: UNK
     Route: 065
     Dates: start: 20061201
  9. PAROXETINE HCL [Suspect]
     Indication: DEPRESSION
     Dosage: UNK
     Route: 065
     Dates: start: 20090223
  10. MIGEA [Suspect]
     Indication: MIGRAINE
     Dosage: UNK
     Route: 065
     Dates: start: 20100618, end: 20100813
  11. MIANSERIN [Suspect]
     Indication: DEPRESSION
     Dosage: GIVEN AT NIGHT
     Route: 065
     Dates: start: 20080925, end: 20081201
  12. MAGNESIUM HYDROXID [Concomitant]
     Indication: PRODUCT USED FOR UNKNOWN INDICATION
     Route: 065
  13. TRUXAL                             /00012101/ [Suspect]
     Indication: PSYCHOTIC DISORDER
     Dosage: UNK
     Route: 065
     Dates: start: 20061201, end: 20110801
  14. EFFEXOR [Suspect]
     Dosage: 75 MG, UNK
     Route: 065
     Dates: start: 20060928
  15. MIRTAZAPINE [Suspect]
     Indication: ANXIETY
     Dosage: GIVEN AT NIGHT
     Route: 065
     Dates: start: 20060320, end: 20110401
  16. NORTRIPTYLINE HCL [Suspect]
     Indication: DEPRESSION
     Dosage: UNK
     Route: 065
     Dates: start: 20090223, end: 20110701
  17. EFFEXOR [Suspect]
     Indication: PRODUCT USED FOR UNKNOWN INDICATION
     Dosage: 150 MG, UNK
     Route: 065
     Dates: end: 20081201
  18. PAROXETINE HYDROCHLORIDE [Concomitant]
     Indication: PRODUCT USED FOR UNKNOWN INDICATION
     Dosage: UNK
     Route: 065
     Dates: end: 20100101
  19. ACETAMINOPHEN [Concomitant]
     Indication: PRODUCT USED FOR UNKNOWN INDICATION
     Dosage: UNK
     Route: 065
     Dates: start: 20060816

REACTIONS (8)
  - FAECES HARD [None]
  - HAEMORRHOIDS [None]
  - OEDEMA [None]
  - RECTAL HAEMORRHAGE [None]
  - ABDOMINAL DISTENSION [None]
  - CONSTIPATION [None]
  - DYSPEPSIA [None]
  - GASTROOESOPHAGEAL REFLUX DISEASE [None]
